FAERS Safety Report 16114868 (Version 2)
Quarter: 2019Q3

REPORT INFORMATION
  Report Type: Spontaneous
  Country: US (occurrence: US)
  Receive Date: 20190325
  Receipt Date: 20190829
  Transmission Date: 20191004
  Serious: Yes (Hospitalization, Other)
  Sender: FDA-Public Use
  Company Number: US-ASTRAZENECA-2019SE43005

PATIENT
  Age: 644 Month
  Sex: Female
  Weight: 79.8 kg

DRUGS (98)
  1. NEXIUM [Suspect]
     Active Substance: ESOMEPRAZOLE MAGNESIUM
     Indication: GASTRIC ULCER
     Route: 048
     Dates: start: 200604, end: 200608
  2. DEXILANT [Suspect]
     Active Substance: DEXLANSOPRAZOLE
     Indication: GASTRIC ULCER
     Route: 065
     Dates: start: 2011, end: 2016
  3. DEXILANT [Suspect]
     Active Substance: DEXLANSOPRAZOLE
     Indication: GASTRIC ULCER
     Dosage: GENERIC
     Route: 065
  4. DICYCLOMINE [Concomitant]
     Active Substance: DICYCLOMINE HYDROCHLORIDE
     Indication: ULCER
     Dates: start: 2016
  5. AMOXICILLIN. [Concomitant]
     Active Substance: AMOXICILLIN
     Indication: SINUS DISORDER
     Dates: start: 2008
  6. ACETAMINOPHEN. [Concomitant]
     Active Substance: ACETAMINOPHEN
     Indication: PAIN
     Dates: start: 2014, end: 2015
  7. METOPROLOL. [Concomitant]
     Active Substance: METOPROLOL
     Indication: BLOOD PRESSURE MEASUREMENT
     Dates: start: 2009
  8. GEODON [Concomitant]
     Active Substance: ZIPRASIDONE HYDROCHLORIDE\ZIPRASIDONE MESYLATE
     Dates: start: 2010
  9. AZITHROMYCIN ANHYDROUS. [Concomitant]
     Active Substance: AZITHROMYCIN ANHYDROUS
     Indication: SINUS DISORDER
     Dates: start: 2012
  10. TIZANIDINE. [Concomitant]
     Active Substance: TIZANIDINE
     Indication: MUSCLE RELAXANT THERAPY
     Dates: start: 2018
  11. FOLIC ACID. [Concomitant]
     Active Substance: FOLIC ACID
     Indication: CARDIAC DISORDER
     Dates: start: 2016
  12. NEXIUM [Suspect]
     Active Substance: ESOMEPRAZOLE MAGNESIUM
     Indication: GASTRIC ULCER
     Route: 048
     Dates: start: 2006, end: 2016
  13. PRILOSEC [Suspect]
     Active Substance: OMEPRAZOLE MAGNESIUM
     Indication: GASTRIC ULCER
     Route: 048
     Dates: start: 2015
  14. PRILOSEC [Suspect]
     Active Substance: OMEPRAZOLE MAGNESIUM
     Indication: GASTRIC ULCER
     Dosage: GENERIC
     Route: 065
     Dates: start: 2015
  15. PROTONIX [Suspect]
     Active Substance: PANTOPRAZOLE SODIUM
     Indication: GASTRIC ULCER
     Route: 065
     Dates: start: 200608, end: 2007
  16. AMOXICILLIN. [Concomitant]
     Active Substance: AMOXICILLIN
     Indication: SINUS DISORDER
     Dates: start: 2010
  17. PROCHLORPERAZINE. [Concomitant]
     Active Substance: PROCHLORPERAZINE
     Indication: NAUSEA
     Dates: start: 2006
  18. DIPHENOXYLATE [Concomitant]
     Active Substance: DIPHENOXYLATE
     Dates: start: 2006
  19. DURADRIN [Concomitant]
     Active Substance: ACETAMINOPHEN\DICHLORALPHENAZONE\ISOMETHEPTENE MUCATE
     Indication: HEADACHE
     Dates: start: 2007
  20. ALPRAZOLAM. [Concomitant]
     Active Substance: ALPRAZOLAM
     Dates: start: 2007, end: 2008
  21. OMNICEF [Concomitant]
     Active Substance: CEFDINIR
     Indication: SINUS DISORDER
     Dates: start: 2007
  22. ABILIFY [Concomitant]
     Active Substance: ARIPIPRAZOLE
     Dates: start: 2009
  23. VENLAFAXINE [Concomitant]
     Active Substance: VENLAFAXINE HYDROCHLORIDE
     Indication: NEUROPATHY PERIPHERAL
     Dates: start: 2009, end: 2013
  24. PLAVIX [Concomitant]
     Active Substance: CLOPIDOGREL BISULFATE
     Indication: COAGULOPATHY
     Dates: start: 2010, end: 2011
  25. CYCLOBENZAPRINE. [Concomitant]
     Active Substance: CYCLOBENZAPRINE
     Indication: NEURALGIA
     Dates: start: 2014
  26. MULTIVITAMIN [Concomitant]
     Active Substance: VITAMINS
     Indication: IMMUNE SYSTEM DISORDER
     Dates: start: 2014
  27. NEXIUM [Suspect]
     Active Substance: ESOMEPRAZOLE MAGNESIUM
     Indication: GASTRIC ULCER
     Route: 048
     Dates: start: 2008, end: 2010
  28. DEXILANT [Suspect]
     Active Substance: DEXLANSOPRAZOLE
     Indication: GASTRIC ULCER
     Dosage: GENERIC
     Route: 065
     Dates: start: 2014, end: 2016
  29. CEFUROXIME. [Concomitant]
     Active Substance: CEFUROXIME
     Dates: start: 2006, end: 2007
  30. PRAVASTATIN. [Concomitant]
     Active Substance: PRAVASTATIN
     Indication: BLOOD CHOLESTEROL
     Dates: start: 2007
  31. TRAMADOL. [Concomitant]
     Active Substance: TRAMADOL
     Indication: PAIN
     Dates: start: 2012
  32. CIPROFLOXACIN. [Concomitant]
     Active Substance: CIPROFLOXACIN
     Dates: start: 2016
  33. CRESTOR [Concomitant]
     Active Substance: ROSUVASTATIN CALCIUM
     Indication: BLOOD CHOLESTEROL
     Dates: start: 2010, end: 2013
  34. RANEXA [Concomitant]
     Active Substance: RANOLAZINE
     Indication: ANGINA PECTORIS
     Dates: start: 2010, end: 2014
  35. SINGULAIR [Concomitant]
     Active Substance: MONTELUKAST SODIUM
     Indication: HYPERSENSITIVITY
     Dates: start: 201702
  36. ZANTAC [Concomitant]
     Active Substance: RANITIDINE HYDROCHLORIDE
  37. LANSOPRAZOLE. [Suspect]
     Active Substance: LANSOPRAZOLE
     Indication: GASTRIC ULCER
     Dosage: GENERIC
     Route: 065
  38. CEFUROXIME. [Concomitant]
     Active Substance: CEFUROXIME
     Dates: end: 2012
  39. CLONAZEPAM. [Concomitant]
     Active Substance: CLONAZEPAM
     Indication: PANIC DISORDER
     Dates: start: 2006
  40. SEROQUEL [Concomitant]
     Active Substance: QUETIAPINE FUMARATE
     Indication: MOOD SWINGS
     Dates: start: 2009, end: 2011
  41. CEFDINIR. [Concomitant]
     Active Substance: CEFDINIR
     Indication: SINUS DISORDER
     Dates: start: 2010
  42. RISPERIDONE. [Concomitant]
     Active Substance: RISPERIDONE
     Indication: MOOD SWINGS
     Dates: start: 2010
  43. FLUTICASONE. [Concomitant]
     Active Substance: FLUTICASONE
     Indication: HYPERSENSITIVITY
     Dates: start: 2010, end: 2011
  44. ESTRADIOL. [Concomitant]
     Active Substance: ESTRADIOL
     Indication: BLOOD OESTROGEN
     Dates: start: 2011, end: 2013
  45. GENTAK EYE OINTMENT [Concomitant]
     Indication: SJOGREN^S SYNDROME
     Dates: start: 2015
  46. HYOPHEN [Concomitant]
     Active Substance: BENZOIC ACID\HYOSCYAMINE SULFATE\METHENAMINE\METHYLENE BLUE\PHENYL SALICYLATE
     Dates: start: 2014
  47. VITAMIN C [Concomitant]
     Active Substance: ASCORBIC ACID
     Indication: VITAMIN C DEFICIENCY
     Dates: start: 201906
  48. TRAMADOL. [Concomitant]
     Active Substance: TRAMADOL
  49. CLONAZEPAM. [Concomitant]
     Active Substance: CLONAZEPAM
  50. LYRICA [Concomitant]
     Active Substance: PREGABALIN
     Indication: AUTOIMMUNE DISORDER
     Dates: start: 201506
  51. ONDANSETRON [Concomitant]
     Active Substance: ONDANSETRON
     Indication: NAUSEA
     Dates: start: 2011
  52. ACETAMINOPHEN. [Concomitant]
     Active Substance: ACETAMINOPHEN
     Indication: PAIN
     Dates: start: 2011
  53. FLUOXETINE [Concomitant]
     Active Substance: FLUOXETINE HYDROCHLORIDE
     Indication: BLOOD PRESSURE MEASUREMENT
     Dates: start: 2006, end: 2007
  54. DURADRIN [Concomitant]
     Active Substance: ACETAMINOPHEN\DICHLORALPHENAZONE\ISOMETHEPTENE MUCATE
     Indication: HYPERTENSION
     Dates: start: 2007
  55. ASPIRIN. [Concomitant]
     Active Substance: ASPIRIN
     Indication: CARDIAC DISORDER
     Dates: start: 2007
  56. ISOSORBIDE. [Concomitant]
     Active Substance: ISOSORBIDE
     Indication: BLOOD PRESSURE MEASUREMENT
     Dates: start: 2008, end: 2010
  57. HYDROCHLOROTHIAZIDE. [Concomitant]
     Active Substance: HYDROCHLOROTHIAZIDE
     Indication: IMMUNE SYSTEM DISORDER
     Dates: start: 2008, end: 2012
  58. PROMETHAZINE [Concomitant]
     Active Substance: PROMETHAZINE HYDROCHLORIDE
     Indication: NAUSEA
     Dates: start: 2013, end: 2014
  59. HYDROCODONE [Concomitant]
     Active Substance: HYDROCODONE
     Indication: PAIN
     Dates: start: 2010
  60. AZITHROMYCIN ANHYDROUS. [Concomitant]
     Active Substance: AZITHROMYCIN ANHYDROUS
     Indication: SINUS DISORDER
     Dates: start: 2009, end: 2010
  61. ESTRADIOL. [Concomitant]
     Active Substance: ESTRADIOL
     Indication: BLOOD OESTROGEN
     Dates: start: 2015
  62. OMEGA RED 4 IN 1 [Concomitant]
     Indication: BLOOD CHOLESTEROL
     Dates: start: 201901
  63. DEXILANT [Suspect]
     Active Substance: DEXLANSOPRAZOLE
     Indication: GASTRIC ULCER
     Dosage: GENERIC
     Route: 065
     Dates: start: 2012
  64. PROTONIX [Suspect]
     Active Substance: PANTOPRAZOLE SODIUM
     Indication: GASTRIC ULCER
     Route: 065
     Dates: start: 2006, end: 2016
  65. PHETERMINE [Concomitant]
     Indication: WEIGHT DECREASED
     Dates: start: 2015, end: 2016
  66. LEVAQUIN [Concomitant]
     Active Substance: LEVOFLOXACIN
     Dates: start: 2006, end: 2007
  67. ACETAMINOPHEN. [Concomitant]
     Active Substance: ACETAMINOPHEN
     Indication: PAIN
     Dates: start: 2006
  68. PROCHLORPERAZINE. [Concomitant]
     Active Substance: PROCHLORPERAZINE
     Indication: NAUSEA
     Dates: start: 2012
  69. NAPROXEN. [Concomitant]
     Active Substance: NAPROXEN
     Indication: INFLAMMATION
     Dates: start: 2006
  70. NITROQUICK [Concomitant]
     Active Substance: NITROGLYCERIN
     Indication: ANGINA PECTORIS
     Dates: start: 2007
  71. IBUPROFEN. [Concomitant]
     Active Substance: IBUPROFEN
     Indication: PAIN
     Dates: start: 2009, end: 2010
  72. RAMIPRIL. [Concomitant]
     Active Substance: RAMIPRIL
     Indication: BLOOD PRESSURE MEASUREMENT
     Dates: start: 2009, end: 2011
  73. TRAMADOL. [Concomitant]
     Active Substance: TRAMADOL
     Indication: PAIN
     Dates: start: 2009
  74. CIPROFLOXACIN. [Concomitant]
     Active Substance: CIPROFLOXACIN
     Dates: start: 2009, end: 2010
  75. TRAZODONE [Concomitant]
     Active Substance: TRAZODONE HYDROCHLORIDE
     Indication: SEDATIVE THERAPY
     Dates: start: 2012, end: 2013
  76. TOPIRAMATE. [Concomitant]
     Active Substance: TOPIRAMATE
     Indication: NEURALGIA
     Dates: start: 2012, end: 2013
  77. URIBEL [Concomitant]
     Active Substance: HYOSCYAMINE SULFATE\METHENAMINE\METHYLENE BLUE\PHENYL SALICYLATE\SODIUM PHOSPHATE, MONOBASIC, MONOHYDRATE
     Dates: start: 2012
  78. FOLIC ACID. [Concomitant]
     Active Substance: FOLIC ACID
     Indication: BONE DISORDER
     Dates: start: 2016
  79. VITAMIN C [Concomitant]
     Active Substance: ASCORBIC ACID
     Indication: VITAMIN C DEFICIENCY
     Dates: start: 2014
  80. OMEGA RED 4 IN 1 [Concomitant]
     Indication: BLOOD CHOLESTEROL
     Dates: start: 2010, end: 2015
  81. DEXILANT [Suspect]
     Active Substance: DEXLANSOPRAZOLE
     Indication: GASTRIC ULCER
     Route: 065
     Dates: start: 2006, end: 2016
  82. PROTONIX [Suspect]
     Active Substance: PANTOPRAZOLE SODIUM
     Indication: GASTRIC ULCER
     Dosage: GENERIC
     Route: 065
     Dates: start: 2010, end: 2011
  83. EFFEXOR [Concomitant]
     Active Substance: VENLAFAXINE HYDROCHLORIDE
     Indication: NEUROPATHY PERIPHERAL
     Dates: start: 2009
  84. LYRICA [Concomitant]
     Active Substance: PREGABALIN
     Indication: FIBROMYALGIA
     Dates: start: 201506
  85. AMOXICILLIN. [Concomitant]
     Active Substance: AMOXICILLIN
     Indication: SINUS DISORDER
     Dates: start: 2006
  86. HYDROCODONE [Concomitant]
     Active Substance: HYDROCODONE
     Indication: PAIN
     Dates: start: 2012
  87. CIPROFLOXACIN. [Concomitant]
     Active Substance: CIPROFLOXACIN
     Dates: start: 2013, end: 2014
  88. PROMETHAZINE [Concomitant]
     Active Substance: PROMETHAZINE HYDROCHLORIDE
     Indication: NAUSEA
     Dates: start: 2009, end: 2011
  89. GABAPENTIN. [Concomitant]
     Active Substance: GABAPENTIN
     Indication: NEUROPATHY PERIPHERAL
     Dates: start: 2014, end: 2015
  90. LANSOPRAZOLE. [Suspect]
     Active Substance: LANSOPRAZOLE
     Indication: GASTRIC ULCER
     Route: 065
  91. PREDNISONE. [Concomitant]
     Active Substance: PREDNISONE
     Indication: INFLAMMATION
     Dates: start: 2014, end: 2015
  92. ONDANSETRON [Concomitant]
     Active Substance: ONDANSETRON
     Indication: NAUSEA
     Dates: start: 2014, end: 2015
  93. LIPITOR [Concomitant]
     Active Substance: ATORVASTATIN CALCIUM
     Indication: BLOOD CHOLESTEROL
     Dates: start: 2009
  94. TRAMADOL. [Concomitant]
     Active Substance: TRAMADOL
     Indication: PAIN
     Dates: start: 2018
  95. NITROGLYCERIN. [Concomitant]
     Active Substance: NITROGLYCERIN
     Indication: ANGINA PECTORIS
     Dates: start: 2009
  96. VITAMIN D [Concomitant]
     Active Substance: VITAMIN D NOS
     Indication: VITAMIN D DEFICIENCY
     Dates: start: 2010, end: 2014
  97. VITAMIN D [Concomitant]
     Active Substance: VITAMIN D NOS
     Indication: VITAMIN D DEFICIENCY
     Dates: start: 2014
  98. PROBIOTIC [Concomitant]
     Active Substance: PROBIOTICS NOS
     Dates: start: 2014

REACTIONS (15)
  - Urinary tract infection [Unknown]
  - Renal failure [Unknown]
  - Irritable bowel syndrome [Unknown]
  - Gastric ulcer [Unknown]
  - Panic attack [Unknown]
  - Depression [Unknown]
  - Acute kidney injury [Not Recovered/Not Resolved]
  - Nephrolithiasis [Unknown]
  - Diverticulitis [Unknown]
  - Gallbladder disorder [Unknown]
  - Duodenal ulcer [Unknown]
  - Anxiety [Unknown]
  - Chronic kidney disease [Not Recovered/Not Resolved]
  - Iron deficiency [Unknown]
  - Nephrogenic anaemia [Unknown]

NARRATIVE: CASE EVENT DATE: 201606
